FAERS Safety Report 23577031 (Version 1)
Quarter: 2024Q1

REPORT INFORMATION
  Report Type: Spontaneous
  Country: US (occurrence: None)
  Receive Date: 20240228
  Receipt Date: 20240228
  Transmission Date: 20240409
  Serious: Yes (Hospitalization)
  Sender: FDA-Public Use
  Company Number: None

PATIENT
  Age: 7 Year
  Sex: Female

DRUGS (1)
  1. SILDENAFIL [Suspect]
     Active Substance: SILDENAFIL
     Indication: Pulmonary hypertension
     Dosage: 1ML EVERY 8 HOURS ORAL/GTUBE?
     Route: 050
     Dates: start: 202401

REACTIONS (2)
  - Liver transplant [None]
  - Infection [None]

NARRATIVE: CASE EVENT DATE: 20240221
